FAERS Safety Report 23369474 (Version 2)
Quarter: 2024Q1

REPORT INFORMATION
  Report Type: Spontaneous
  Country: US (occurrence: US)
  Receive Date: 20240105
  Receipt Date: 20240201
  Transmission Date: 20240409
  Serious: No
  Sender: FDA-Public Use
  Company Number: US-LUPIN PHARMACEUTICALS INC.-2023-11883

PATIENT

DRUGS (1)
  1. BUDESONIDE [Suspect]
     Active Substance: BUDESONIDE
     Indication: Chronic sinusitis
     Dosage: 1 DOSAGE FORM, BID (1 VIAL TWICE DAILY)

REACTIONS (4)
  - Nasal discomfort [Unknown]
  - Off label use [Unknown]
  - Product prescribing error [Unknown]
  - Wrong technique in device usage process [Unknown]
